FAERS Safety Report 4296178-3 (Version None)
Quarter: 2004Q1

REPORT INFORMATION
  Report Type: 
  Country: None (occurrence: None)
  Receive Date: 20040217
  Receipt Date: 20030909
  Transmission Date: 20041129
  Serious: No
  Sender: FDA-Public Use
  Company Number: US-GLAXOSMITHKLINE-A0425380A

PATIENT
  Age: 47 Year
  Sex: Male
  Weight: 145.5 kg

DRUGS (6)
  1. LAMICTAL [Suspect]
     Indication: BIPOLAR DISORDER
     Dosage: 25MG TWICE PER DAY
     Route: 048
     Dates: start: 20030812
  2. OXYCONTIN [Concomitant]
     Indication: PAIN
     Route: 048
  3. LIPITOR [Concomitant]
     Dosage: 10MG AT NIGHT
     Route: 048
  4. EFFEXOR [Concomitant]
     Dosage: 300MG AT NIGHT
     Route: 048
  5. ALPRAZOLAM [Concomitant]
     Dosage: .5MG THREE TIMES PER DAY
     Route: 048
  6. LOTENSIN HCT [Concomitant]
     Route: 048

REACTIONS (3)
  - APATHY [None]
  - DEPRESSION [None]
  - LETHARGY [None]
